FAERS Safety Report 14272029 (Version 2)
Quarter: 2018Q1

REPORT INFORMATION
  Report Type: Spontaneous
  Country: US (occurrence: US)
  Receive Date: 20171211
  Receipt Date: 20180116
  Transmission Date: 20180508
  Serious: Yes (Death, Other)
  Sender: FDA-Public Use
  Company Number: US-GEHC-2017CSU004020

PATIENT
  Sex: Female

DRUGS (1)
  1. OMNISCAN [Suspect]
     Active Substance: GADODIAMIDE
     Indication: AMAUROSIS FUGAX
     Dosage: 20 ML, SINGLE
     Route: 042
     Dates: start: 20171122, end: 20171122

REACTIONS (2)
  - Cerebrovascular accident [Fatal]
  - Vessel puncture site haemorrhage [Unknown]

NARRATIVE: CASE EVENT DATE: 20171122
